FAERS Safety Report 4336925-5 (Version None)
Quarter: 2004Q2

REPORT INFORMATION
  Report Type: 
  Country: None (occurrence: None)
  Receive Date: 20040407
  Receipt Date: 20040326
  Transmission Date: 20050107
  Serious: Yes (Hospitalization)
  Sender: FDA-Public Use
  Company Number: US-SHR-03-008052

PATIENT
  Age: 62 Year
  Sex: Male
  Weight: 87.7 kg

DRUGS (10)
  1. GM-CSF (SARGRAMOSTIM) INJECTION [Suspect]
     Indication: MYELODYSPLASTIC SYNDROME
     Dosage: 125 MCG/M2/DAY X 14DAYS Q28 DAYS, SUBCUTANEOUS; TOTAL DOSE ADM/COURSE 2340MCG, SUBCUTANEOUS
     Route: 058
     Dates: start: 20030410, end: 20030423
  2. GM-CSF (SARGRAMOSTIM) INJECTION [Suspect]
     Indication: MYELODYSPLASTIC SYNDROME
     Dosage: 125 MCG/M2/DAY X 14DAYS Q28 DAYS, SUBCUTANEOUS; TOTAL DOSE ADM/COURSE 2340MCG, SUBCUTANEOUS
     Route: 058
     Dates: start: 20030508, end: 20030517
  3. BRYOSTATIN 1 (BRYOSTATIN 1) [Suspect]
     Indication: MYELODYSPLASTIC SYNDROME
     Dosage: 14 MCG/M2/DAY X 14DAYS Q28 DAYS, INTRAVENOUS; TOTAL DOSE ADM FOR COURSE 259MCG, INTRAVENOUS
     Route: 042
     Dates: start: 20030410, end: 20030424
  4. BRYOSTATIN 1 (BRYOSTATIN 1) [Suspect]
     Indication: MYELODYSPLASTIC SYNDROME
     Dosage: 14 MCG/M2/DAY X 14DAYS Q28 DAYS, INTRAVENOUS; TOTAL DOSE ADM FOR COURSE 259MCG, INTRAVENOUS
     Route: 042
     Dates: start: 20030508, end: 20030517
  5. VANCOMYCIN [Concomitant]
  6. OXYCODONE HCL [Concomitant]
  7. NORFLOXACIN [Concomitant]
  8. VALTREX [Concomitant]
  9. COLACE (DOCUSATE SODIUM) [Concomitant]
  10. SENNA (SENNA) [Concomitant]

REACTIONS (12)
  - BLOOD CULTURE POSITIVE [None]
  - CATHETER RELATED COMPLICATION [None]
  - CATHETER SITE INFECTION [None]
  - CATHETER SITE PAIN [None]
  - FATIGUE [None]
  - FEBRILE NEUTROPENIA [None]
  - INJECTED LIMB MOBILITY DECREASED [None]
  - JUGULAR VEIN THROMBOSIS [None]
  - OEDEMA PERIPHERAL [None]
  - PHLEBOTHROMBOSIS [None]
  - STAPHYLOCOCCAL INFECTION [None]
  - SUBCLAVIAN VEIN THROMBOSIS [None]
